FAERS Safety Report 6790921-7 (Version None)
Quarter: 2010Q2

REPORT INFORMATION
  Report Type: 
  Country: None (occurrence: None)
  Receive Date: 20100624
  Receipt Date: 20100616
  Transmission Date: 20101027
  Serious: Yes (Hospitalization)
  Sender: FDA-Public Use
  Company Number: US-JNJFOC-20100605959

PATIENT
  Sex: Female

DRUGS (3)
  1. DURAGESIC-100 [Suspect]
     Indication: PAIN
     Route: 062
  2. DURAGESIC-100 [Suspect]
     Route: 062
  3. DURAGESIC-100 [Suspect]
     Route: 062

REACTIONS (10)
  - ABNORMAL LOSS OF WEIGHT [None]
  - ANGER [None]
  - APPLICATION SITE REACTION [None]
  - FEMORAL HERNIA [None]
  - HORMONE LEVEL ABNORMAL [None]
  - HOSPITALISATION [None]
  - HYPERHIDROSIS [None]
  - INTESTINAL OBSTRUCTION [None]
  - TEARFULNESS [None]
  - VAGINAL HAEMORRHAGE [None]
